FAERS Safety Report 9383493 (Version 2)
Quarter: 2013Q4

REPORT INFORMATION
  Report Type: Spontaneous
  Country: GB (occurrence: GB)
  Receive Date: 20130704
  Receipt Date: 20131106
  Transmission Date: 20140711
  Serious: Yes (Hospitalization, Other)
  Sender: FDA-Public Use
  Company Number: GB-PFIZER INC-2013192554

PATIENT
  Age: 52 Year
  Sex: Female

DRUGS (5)
  1. SULFASALAZINE [Suspect]
     Indication: RHEUMATOID ARTHRITIS
     Dosage: 500MG ONCE DAILY INCREASING BY ONE TABLET PER DAY UNTIL MAXIMUM OF 2000MG DAILY IN TWO DOSES.
     Route: 048
     Dates: start: 201303, end: 20130604
  2. PREDNISOLONE [Concomitant]
     Indication: RHEUMATOID ARTHRITIS
     Dosage: 7.5 MG, 1X/DAY
     Route: 048
     Dates: start: 201303
  3. PREDNISOLONE [Concomitant]
     Route: 048
     Dates: start: 20120703
  4. PREDNISOLONE [Concomitant]
     Route: 048
     Dates: start: 20110222
  5. LEVOTHYROXINE [Concomitant]
     Indication: HYPOTHYROIDISM
     Dosage: 150 UG, UNK
     Route: 048
     Dates: start: 2002

REACTIONS (1)
  - Neutropenic sepsis [Recovered/Resolved]
